FAERS Safety Report 15983120 (Version 1)
Quarter: 2019Q1

REPORT INFORMATION
  Report Type: Spontaneous
  Country: US (occurrence: US)
  Receive Date: 20190216
  Receipt Date: 20190216
  Transmission Date: 20190418
  Serious: Yes (Disabling)
  Sender: FDA-Public Use
  Company Number: None

PATIENT
  Sex: Female
  Weight: 51.71 kg

DRUGS (1)
  1. NEXPLANON [Suspect]
     Active Substance: ETONOGESTREL

REACTIONS (19)
  - Panic attack [None]
  - Anxiety [None]
  - Hyperhidrosis [None]
  - Acne [None]
  - Nausea [None]
  - Confusional state [None]
  - Respiratory tract infection [None]
  - Pelvic pain [None]
  - Breast cyst [None]
  - Menorrhagia [None]
  - Headache [None]
  - Gallbladder disorder [None]
  - Depression [None]
  - Breast pain [None]
  - Abdominal pain upper [None]
  - Psychotic disorder [None]
  - Major depression [None]
  - Feeding disorder [None]
  - Menstruation irregular [None]
